FAERS Safety Report 9632309 (Version 8)
Quarter: 2015Q2

REPORT INFORMATION
  Report Type: Spontaneous
  Country: US (occurrence: US)
  Receive Date: 20131018
  Receipt Date: 20150416
  Transmission Date: 20150821
  Serious: Yes (Hospitalization, Other)
  Sender: FDA-Public Use
  Company Number: US-009507513-1310USA006020

PATIENT
  Sex: Female
  Weight: 53.98 kg

DRUGS (6)
  1. FOSAMAX [Suspect]
     Active Substance: ALENDRONATE SODIUM
     Indication: BONE LOSS
     Dosage: 70 MG, QW
     Route: 048
     Dates: start: 2001, end: 200804
  2. CORTICOSTEROIDS (UNSPECIFIED) [Concomitant]
     Active Substance: UNSPECIFIED INGREDIENT
     Dosage: UNK
     Dates: start: 2006, end: 2009
  3. ALENDRONATE SODIUM. [Suspect]
     Active Substance: ALENDRONATE SODIUM
     Indication: OSTEOPENIA
     Dosage: 70 MG, UNK
     Route: 048
     Dates: start: 20080501, end: 201008
  4. FOSAMAX [Suspect]
     Active Substance: ALENDRONATE SODIUM
     Indication: OSTEOPENIA
     Dosage: 70 MG, QW
     Route: 048
     Dates: start: 201007, end: 201110
  5. VITAMINS (UNSPECIFIED) [Concomitant]
     Active Substance: VITAMINS
     Dosage: UNK DF, QD
     Route: 048
     Dates: start: 1997
  6. ALENDRONATE SODIUM. [Suspect]
     Active Substance: ALENDRONATE SODIUM
     Dosage: 70 MG, QW
     Route: 048
     Dates: start: 201106, end: 201110

REACTIONS (18)
  - Tonsillectomy [Unknown]
  - Bronchitis [Unknown]
  - Hypersensitivity [Unknown]
  - Vomiting [Unknown]
  - Intramedullary rod insertion [Unknown]
  - Osteonecrosis [Unknown]
  - Adverse event [Unknown]
  - Nausea [Unknown]
  - Fall [Recovered/Resolved with Sequelae]
  - Periarthritis [Unknown]
  - Arthritis [Unknown]
  - Humerus fracture [Recovered/Resolved with Sequelae]
  - Osteopenia [Unknown]
  - Migraine [Unknown]
  - Decreased appetite [Unknown]
  - Sinus headache [Unknown]
  - Gallbladder operation [Unknown]
  - Femur fracture [Unknown]

NARRATIVE: CASE EVENT DATE: 2006
